FAERS Safety Report 11983110 (Version 2)
Quarter: 2016Q1

REPORT INFORMATION
  Report Type: Spontaneous
  Country: CR (occurrence: CR)
  Receive Date: 20160201
  Receipt Date: 20160210
  Transmission Date: 20160526
  Serious: Yes (Other)
  Sender: FDA-Public Use
  Company Number: CR-PFIZER INC-2016051416

PATIENT
  Age: 63 Year
  Sex: Female

DRUGS (6)
  1. LYRICA [Suspect]
     Active Substance: PREGABALIN
     Dosage: 150 MG, UNK
     Dates: end: 201511
  2. GEMFIBROZIL. [Suspect]
     Active Substance: GEMFIBROZIL
     Dosage: UNK
     Dates: end: 201511
  3. IRBESARTAN. [Suspect]
     Active Substance: IRBESARTAN
     Dosage: UNK
     Dates: end: 201511
  4. LOVASTATINE [Suspect]
     Active Substance: LOVASTATIN
     Dosage: UNK
     Dates: end: 201511
  5. AMITRIPTYLENE [Suspect]
     Active Substance: AMITRIPTYLINE
     Dosage: UNK
     Dates: end: 201511
  6. LYRICA [Suspect]
     Active Substance: PREGABALIN
     Indication: SPINAL DISORDER
     Dosage: 75 MG, UNK

REACTIONS (3)
  - Myocardial infarction [Recovered/Resolved]
  - Blood pressure decreased [Recovered/Resolved]
  - Malaise [Recovered/Resolved]

NARRATIVE: CASE EVENT DATE: 20151005
